FAERS Safety Report 5585454-X (Version None)
Quarter: 2008Q1

REPORT INFORMATION
  Report Type: 
  Country: None (occurrence: None)
  Receive Date: 20080104
  Receipt Date: 20080104
  Transmission Date: 20080703
  Serious: Yes (Hospitalization)
  Sender: FDA-Public Use
  Company Number: None

PATIENT
  Age: 70 Year
  Sex: Female
  Weight: 66 kg

DRUGS (10)
  1. WARFARIN SODIUM [Suspect]
     Indication: ATRIAL FIBRILLATION
     Dosage: 2.5MG PO QD
     Route: 048
     Dates: start: 20071109, end: 20071111
  2. MEGACE [Concomitant]
  3. METOPROLOL [Concomitant]
  4. LANSOPRAZOLE [Concomitant]
  5. M.V.I. [Concomitant]
  6. INSULIN ASPART [Concomitant]
  7. MORPHINE [Concomitant]
  8. SENNA [Concomitant]
  9. DULCOLAX [Concomitant]
  10. POTASSIUM CHLORIDE [Concomitant]

REACTIONS (4)
  - DEHYDRATION [None]
  - HAEMATURIA [None]
  - INTERNATIONAL NORMALISED RATIO INCREASED [None]
  - RENAL FAILURE ACUTE [None]
